FAERS Safety Report 5924840-2 (Version None)
Quarter: 2008Q4

REPORT INFORMATION
  Report Type: 
  Country: None (occurrence: None)
  Receive Date: 20081017
  Receipt Date: 20081017
  Transmission Date: 20090506
  Serious: Yes (Death, Hospitalization)
  Sender: FDA-Public Use
  Company Number: None

PATIENT
  Age: 96 Year
  Sex: Female
  Weight: 40.8237 kg

DRUGS (1)
  1. DIGITEK 250 ACTOVIS-IN NEW JERSEY PLANT [Suspect]
     Indication: HEART RATE IRREGULAR
     Dosage: DAILY PO
     Route: 048
     Dates: start: 20071004, end: 20080118

REACTIONS (4)
  - DRUG TOXICITY [None]
  - INCORRECT DOSE ADMINISTERED [None]
  - PRODUCT QUALITY ISSUE [None]
  - SUDDEN DEATH [None]
